FAERS Safety Report 6069620-5 (Version None)
Quarter: 2009Q1

REPORT INFORMATION
  Report Type: 
  Country: None (occurrence: None)
  Receive Date: 20090209
  Receipt Date: 20090204
  Transmission Date: 20090719
  Serious: Yes (Disabling)
  Sender: FDA-Public Use
  Company Number: US-BRISTOL-MYERS SQUIBB COMPANY-14463335

PATIENT
  Age: 50 Year
  Sex: Female

DRUGS (10)
  1. ABILIFY [Suspect]
     Indication: BIPOLAR I DISORDER
     Dosage: FIRST 3MG TAKEN AND THEN INCREASED TO 15MG(IN OCT08);THEN 20 MG 05-NOV-08 TO 03-DEC-08
     Route: 048
     Dates: end: 20081203
  2. ABILIFY [Suspect]
     Indication: MENTAL DISORDER
     Dosage: FIRST 3MG TAKEN AND THEN INCREASED TO 15MG(IN OCT08);THEN 20 MG 05-NOV-08 TO 03-DEC-08
     Route: 048
     Dates: end: 20081203
  3. ULTRAN TAB [Concomitant]
  4. GABAPENTIN [Concomitant]
  5. SYNTHROID [Concomitant]
  6. PROVIGIL [Concomitant]
  7. LASIX [Concomitant]
  8. ALDACTONE [Concomitant]
  9. ORUDIS [Concomitant]
  10. LICO3 [Concomitant]

REACTIONS (2)
  - STRABISMUS [None]
  - VISION BLURRED [None]
